FAERS Safety Report 14686881 (Version 2)
Quarter: 2019Q4

REPORT INFORMATION
  Report Type: Spontaneous
  Country: GB (occurrence: GB)
  Receive Date: 20180327
  Receipt Date: 20191128
  Transmission Date: 20200122
  Serious: Yes (Other)
  Sender: FDA-Public Use
  Company Number: PHHY2018GB047299

PATIENT
  Age: 24 Year
  Sex: Female

DRUGS (15)
  1. CYCLOPHOSPHAMIDE. [Suspect]
     Active Substance: CYCLOPHOSPHAMIDE
     Dosage: 7.5 G, (TOTAL CUMULATIVE)
     Route: 065
  2. RITUXIMAB. [Suspect]
     Active Substance: RITUXIMAB
     Dosage: 1 G, (EACH INFUSION)
     Route: 041
     Dates: start: 200911
  3. CYCLOPHOSPHAMIDE. [Suspect]
     Active Substance: CYCLOPHOSPHAMIDE
     Indication: GRANULOMATOSIS WITH POLYANGIITIS
     Dosage: UNK (6 PULSES)
     Route: 065
     Dates: start: 2006
  4. RITUXIMAB. [Suspect]
     Active Substance: RITUXIMAB
     Dosage: 1 G, (EACH INFUSION)
     Route: 041
     Dates: start: 201101
  5. RITUXIMAB. [Suspect]
     Active Substance: RITUXIMAB
     Dosage: UNK
     Route: 041
     Dates: start: 201409
  6. AZATHIOPRINE. [Suspect]
     Active Substance: AZATHIOPRINE
     Indication: CROHN^S DISEASE
  7. MYCOPHENOLATE MOFETIL. [Suspect]
     Active Substance: MYCOPHENOLATE MOFETIL
     Indication: GRANULOMATOSIS WITH POLYANGIITIS
     Dosage: UNK
     Route: 065
  8. RITUXIMAB. [Suspect]
     Active Substance: RITUXIMAB
     Indication: GRANULOMATOSIS WITH POLYANGIITIS
     Dosage: 1 G, (2 INFUSION)
     Route: 041
     Dates: start: 200611
  9. RITUXIMAB. [Suspect]
     Active Substance: RITUXIMAB
     Dosage: 1 G, (EACH INFUSION)
     Route: 041
     Dates: start: 201008
  10. AZATHIOPRINE. [Suspect]
     Active Substance: AZATHIOPRINE
     Indication: GRANULOMATOSIS WITH POLYANGIITIS
     Dosage: UNK
     Route: 065
  11. METHYLPREDNISOLONE. [Suspect]
     Active Substance: METHYLPREDNISOLONE
     Indication: GRANULOMATOSIS WITH POLYANGIITIS
     Dosage: UNK
     Route: 065
     Dates: start: 2006
  12. RITUXIMAB. [Suspect]
     Active Substance: RITUXIMAB
     Dosage: 1 DF, UNK
     Route: 041
     Dates: start: 200806
  13. RITUXIMAB. [Suspect]
     Active Substance: RITUXIMAB
     Dosage: 1 G, (EACH INFUSION)
     Route: 041
     Dates: start: 201107
  14. RITUXIMAB. [Suspect]
     Active Substance: RITUXIMAB
     Dosage: (TOTAL CUMULATIVE DOSE 10.8 G
     Route: 041
     Dates: start: 201405
  15. METHOTREXATE. [Suspect]
     Active Substance: METHOTREXATE
     Indication: GRANULOMATOSIS WITH POLYANGIITIS
     Dosage: UNK
     Route: 065

REACTIONS (10)
  - Perineal ulceration [Unknown]
  - Diabetes insipidus [Unknown]
  - Headache [Unknown]
  - Disease recurrence [Unknown]
  - Drug ineffective [Unknown]
  - Adrenocorticotropic hormone deficiency [Unknown]
  - Rectal discharge [Unknown]
  - Granulomatosis with polyangiitis [Unknown]
  - Crohn^s disease [Recovered/Resolved]
  - Proctalgia [Unknown]

NARRATIVE: CASE EVENT DATE: 2006
